FAERS Safety Report 19518637 (Version 1)
Quarter: 2021Q3

REPORT INFORMATION
  Report Type: Spontaneous
  Country: US (occurrence: US)
  Receive Date: 20210709
  Receipt Date: 20210709
  Transmission Date: 20211014
  Serious: No
  Sender: FDA-Public Use
  Company Number: None

PATIENT
  Sex: Female

DRUGS (1)
  1. NORDITROPIN [Suspect]
     Active Substance: SOMATROPIN
     Indication: SHORT STATURE
     Route: 058
     Dates: start: 20210307

REACTIONS (6)
  - Incorrect dose administered by device [None]
  - Syringe issue [None]
  - Incorrect dose administered [None]
  - Wrong technique in product usage process [None]
  - Product quality issue [None]
  - Dose calculation error [None]
